FAERS Safety Report 14689611 (Version 5)
Quarter: 2018Q3

REPORT INFORMATION
  Report Type: Spontaneous
  Country: CA (occurrence: CA)
  Receive Date: 20180328
  Receipt Date: 20180816
  Transmission Date: 20181010
  Serious: Yes (Hospitalization, Other)
  Sender: FDA-Public Use
  Company Number: CA-CELLTRION INC.-2018CA018745

PATIENT

DRUGS (11)
  1. INFLECTRA [Suspect]
     Active Substance: INFLIXIMAB-DYYB
     Indication: CROHN^S DISEASE
     Dosage: 400 MG, CYCLIC(0, 2, 6, THEN EVERY 8 WEEKS)
     Route: 042
     Dates: start: 20180220
  2. ACETAMINOPHEN. [Concomitant]
     Active Substance: ACETAMINOPHEN
  3. INFLECTRA [Suspect]
     Active Substance: INFLIXIMAB-DYYB
     Dosage: 400 MG, CYCLIC (0, 2, 6, THEN EVERY 8 WEEKS)
     Route: 042
     Dates: start: 20180803
  4. EURO D [Concomitant]
     Dosage: 2 DF, DAILY
  5. INFLECTRA [Suspect]
     Active Substance: INFLIXIMAB-DYYB
     Dosage: 400 MG, CYCLIC(0, 2, 6, THEN EVERY 8 WEEKS)
     Route: 042
     Dates: start: 20180313
  6. INFLECTRA [Suspect]
     Active Substance: INFLIXIMAB-DYYB
     Dosage: 400 MG, CYCLIC(0, 2, 6, THEN EVERY 8 WEEKS)
     Route: 042
     Dates: start: 20180313
  7. INFLECTRA [Suspect]
     Active Substance: INFLIXIMAB-DYYB
     Dosage: 400 MG, CYCLIC(0, 2, 6, THEN EVERY 8 WEEKS)
     Route: 042
     Dates: start: 20180608
  8. PANTOPRAZOLE [Concomitant]
     Active Substance: PANTOPRAZOLE
     Dosage: 40 MG, DAILY
  9. OLMETEC [Concomitant]
     Active Substance: OLMESARTAN MEDOXOMIL
     Dosage: UNK, DAILY
  10. FERROUS SULFATE. [Concomitant]
     Active Substance: FERROUS SULFATE
     Dosage: UNK
  11. BISOPROLOL [Concomitant]
     Active Substance: BISOPROLOL
     Dosage: UNK

REACTIONS (10)
  - Fungal infection [Recovered/Resolved]
  - Anxiety [Unknown]
  - Infusion site haemorrhage [Unknown]
  - Heart rate abnormal [Unknown]
  - Condition aggravated [Recovered/Resolved]
  - Hypertension [Unknown]
  - Oesophageal pain [Not Recovered/Not Resolved]
  - Oesophageal obstruction [Unknown]
  - Pulmonary oedema [Unknown]
  - Dyspnoea [Unknown]

NARRATIVE: CASE EVENT DATE: 201803
